FAERS Safety Report 20740655 (Version 4)
Quarter: 2022Q3

REPORT INFORMATION
  Report Type: Spontaneous
  Country: US (occurrence: US)
  Receive Date: 20220422
  Receipt Date: 20220824
  Transmission Date: 20221027
  Serious: No
  Sender: FDA-Public Use
  Company Number: US-PFIZER INC-202200409251

PATIENT
  Age: 75 Year
  Sex: Female

DRUGS (5)
  1. IBRANCE [Suspect]
     Active Substance: PALBOCICLIB
     Dosage: 125 MG
     Dates: start: 20220209
  2. IBRANCE [Suspect]
     Active Substance: PALBOCICLIB
     Dosage: 125 MG, ALTERNATE DAY
  3. IBRANCE [Suspect]
     Active Substance: PALBOCICLIB
     Dosage: 100 MG
     Dates: start: 20220209
  4. ATORVASTATIN [Concomitant]
     Active Substance: ATORVASTATIN
     Dosage: 20 MG
  5. ZOMETA [Concomitant]
     Active Substance: ZOLEDRONIC ACID
     Dosage: UNK, EVERY 3 MONTHS

REACTIONS (15)
  - Off label use [Unknown]
  - Product dose omission issue [Unknown]
  - Product use issue [Unknown]
  - Arthralgia [Unknown]
  - Rash [Not Recovered/Not Resolved]
  - Pruritus [Unknown]
  - Constipation [Unknown]
  - Haemorrhoids [Unknown]
  - Fatigue [Unknown]
  - Gingival bleeding [Unknown]
  - Dyspepsia [Unknown]
  - Myalgia [Unknown]
  - White blood cell count decreased [Unknown]
  - Heart rate decreased [Unknown]
  - Heart rate increased [Unknown]

NARRATIVE: CASE EVENT DATE: 20220101
